FAERS Safety Report 10245414 (Version 3)
Quarter: 2015Q4

REPORT INFORMATION
  Report Type: Report from Study
  Country: DE (occurrence: DE)
  Receive Date: 20140618
  Receipt Date: 20151118
  Transmission Date: 20160304
  Serious: Yes (Hospitalization)
  Sender: FDA-Public Use
  Company Number: PHHO2012DE001785

PATIENT
  Age: 59 Year
  Sex: Male
  Weight: 79 kg

DRUGS (20)
  1. PACLITAXEL. [Suspect]
     Active Substance: PACLITAXEL
     Indication: LARGE CELL LUNG CANCER
     Dosage: 175 MG/M2, UNK
     Route: 042
     Dates: start: 20111216, end: 20120109
  2. BELOC-ZOC MITE [Concomitant]
     Active Substance: METOPROLOL SUCCINATE
     Indication: HYPERTENSION
     Dosage: UNK
     Dates: start: 20110513
  3. PARACODIN                               /GFR/ [Concomitant]
     Indication: PROPHYLAXIS
     Dosage: UNK
     Dates: start: 20110513
  4. AVELOX [Concomitant]
     Active Substance: MOXIFLOXACIN HYDROCHLORIDE
     Indication: GASTRITIS
     Dosage: UNK
     Dates: start: 20120120
  5. ASPIRIN. [Concomitant]
     Active Substance: ASPIRIN
     Indication: CORONARY ARTERY DISEASE
     Dosage: UNK
     Dates: start: 20100506
  6. ATACAND [Concomitant]
     Active Substance: CANDESARTAN CILEXETIL
     Indication: HYPERTENSION
  7. NOVALGIN [Concomitant]
     Active Substance: METAMIZOLE SODIUM
     Indication: ANALGESIC THERAPY
     Dosage: UNK
     Dates: start: 20111227
  8. MCP [Concomitant]
     Active Substance: METOCLOPRAMIDE HYDROCHLORIDE
     Indication: PROPHYLAXIS OF NAUSEA AND VOMITING
     Dosage: UNK
     Dates: start: 20111227
  9. ONDANSETRON [Concomitant]
     Active Substance: ONDANSETRON
     Indication: PROPHYLAXIS OF NAUSEA AND VOMITING
     Dosage: UNK
     Dates: start: 20111227
  10. NEURO-RATIOPHARM N [Concomitant]
     Indication: POLYNEUROPATHY
     Dosage: UNK
     Dates: start: 20111227
  11. AFINITOR [Suspect]
     Active Substance: EVEROLIMUS
     Indication: LARGE CELL LUNG CANCER
     Dosage: 5 MG, UNK
     Route: 048
     Dates: start: 20111216, end: 20120127
  12. PACLITAXEL. [Suspect]
     Active Substance: PACLITAXEL
     Dosage: 175 MG/M2, UNK
     Route: 042
     Dates: start: 20120213
  13. VOTUM [Concomitant]
     Active Substance: OLMESARTAN MEDOXOMIL
     Indication: HYPERTENSION
     Dosage: UNK
  14. SIMVASTATIN. [Concomitant]
     Active Substance: SIMVASTATIN
     Indication: HYPERCHOLESTEROLAEMIA
  15. AUGMENTIN [Concomitant]
     Active Substance: AMOXICILLIN\CLAVULANATE POTASSIUM
     Indication: C-REACTIVE PROTEIN INCREASED
     Dosage: UNK
     Dates: start: 20120109, end: 20120116
  16. AFINITOR [Suspect]
     Active Substance: EVEROLIMUS
     Dosage: 5 MG, UNK
     Route: 048
     Dates: start: 20120213
  17. CARBOPLATIN. [Suspect]
     Active Substance: CARBOPLATIN
     Indication: LARGE CELL LUNG CANCER
     Dosage: AUC 5
     Route: 042
     Dates: start: 20111216, end: 20120109
  18. CARBOPLATIN. [Suspect]
     Active Substance: CARBOPLATIN
     Dosage: AUC 5
     Route: 042
     Dates: start: 20120213
  19. METOPROLOL [Concomitant]
     Active Substance: METOPROLOL
     Indication: HYPERTENSION
     Dosage: UNK
     Dates: start: 20100506, end: 20110512
  20. TAVANIC [Concomitant]
     Active Substance: LEVOFLOXACIN
     Indication: PYREXIA
     Dosage: UNK
     Dates: start: 20111218, end: 20111227

REACTIONS (4)
  - Pneumonia [Recovered/Resolved]
  - Pleural effusion [Recovered/Resolved]
  - Atrial fibrillation [Recovered/Resolved]
  - Pneumothorax [Recovered/Resolved]

NARRATIVE: CASE EVENT DATE: 20120124
